FAERS Safety Report 8423333-0 (Version None)
Quarter: 2012Q2

REPORT INFORMATION
  Report Type: 
  Country: None (occurrence: None)
  Receive Date: 20120608
  Receipt Date: 20120606
  Transmission Date: 20120825
  Serious: Yes (Other)
  Sender: FDA-Public Use
  Company Number: GB-PFIZER INC-2012135503

PATIENT
  Age: 84 Year
  Sex: Male
  Weight: 62 kg

DRUGS (9)
  1. TOLTERODINE TARTRATE [Suspect]
     Indication: URINARY TRACT DISORDER
     Dosage: 4 MG, 1X/DAY
     Route: 048
     Dates: start: 20111110, end: 20120312
  2. VESICARE [Suspect]
     Dosage: 5 MG, 2X/DAY
     Route: 048
     Dates: end: 20120513
  3. VESICARE [Suspect]
     Dosage: 10 MG, UNK
  4. ACETYLSALICYLIC ACID [Concomitant]
     Indication: MYOCARDIAL INFARCTION
     Route: 048
     Dates: start: 20010101
  5. VESICARE [Suspect]
     Indication: URINARY TRACT DISORDER
     Dosage: UNK
     Route: 065
     Dates: start: 20120501
  6. BISOPROLOL FUMARATE [Concomitant]
     Indication: MYOCARDIAL INFARCTION
     Dosage: 5 MG, 2X/DAY
     Route: 048
     Dates: start: 20040101
  7. TAMSULOSIN HYDROCHLORIDE [Suspect]
     Indication: URINARY TRACT DISORDER
     Route: 048
     Dates: start: 20120501, end: 20120515
  8. RAMIPRIL [Concomitant]
     Indication: MYOCARDIAL INFARCTION
     Route: 048
     Dates: start: 20010101
  9. SIMVASTATIN [Concomitant]
     Indication: MYOCARDIAL INFARCTION
     Route: 048
     Dates: start: 20010101

REACTIONS (4)
  - DISORIENTATION [None]
  - FALL [None]
  - SINUS CONGESTION [None]
  - CONFUSIONAL STATE [None]
